FAERS Safety Report 8573321-9 (Version None)
Quarter: 2012Q2

REPORT INFORMATION
  Report Type: 
  Country: None (occurrence: None)
  Receive Date: 20120418
  Receipt Date: 20080703
  Transmission Date: 20120825
  Serious: Yes (Other)
  Sender: FDA-Public Use
  Company Number: PHEH2008US02505

PATIENT
  Age: 55 Year
  Sex: Male

DRUGS (5)
  1. LEXAPRO [Concomitant]
  2. PROTONIX [Concomitant]
  3. DIOVAN HCT [Suspect]
     Indication: HYPERTENSION
     Dosage: 160 MG VALSAR/25 MG HCTZ, ORAL
     Route: 048
     Dates: start: 20060307, end: 20080215
  4. ACTOS /USA/ (PIOGLITAZONE, PIOGLITAZONE HYDROCHLORIDE) [Concomitant]
  5. BYETTA [Concomitant]

REACTIONS (4)
  - BLOOD CREATININE INCREASED [None]
  - BLOOD UREA INCREASED [None]
  - GLOMERULAR FILTRATION RATE DECREASED [None]
  - RENAL FAILURE [None]
